FAERS Safety Report 8537649-0 (Version None)
Quarter: 2012Q3

REPORT INFORMATION
  Report Type: 
  Country: None (occurrence: None)
  Receive Date: 20120725
  Receipt Date: 20120717
  Transmission Date: 20120928
  Serious: Yes (Other)
  Sender: FDA-Public Use
  Company Number: PHHY2012CA005321

PATIENT
  Sex: Female

DRUGS (3)
  1. GILENYA [Suspect]
     Dosage: 0.5 MG, QOD
     Route: 048
     Dates: start: 20120206, end: 20120714
  2. BACLOFEN [Concomitant]
     Dosage: 60 MG, DAILY
  3. GILENYA [Suspect]
     Indication: RELAPSING-REMITTING MULTIPLE SCLEROSIS
     Dosage: 0.5 MG, QD
     Route: 048
     Dates: start: 20120116

REACTIONS (21)
  - BREAST PAIN [None]
  - PAIN [None]
  - NAUSEA [None]
  - VERTIGO [None]
  - HYPOAESTHESIA [None]
  - INAPPROPRIATE SCHEDULE OF DRUG ADMINISTRATION [None]
  - MUSCULOSKELETAL PAIN [None]
  - POOR QUALITY SLEEP [None]
  - MIDDLE EAR EFFUSION [None]
  - MIGRAINE [None]
  - DIZZINESS [None]
  - EYELID IRRITATION [None]
  - AGGRESSION [None]
  - HEADACHE [None]
  - OROPHARYNGEAL PAIN [None]
  - PAIN IN EXTREMITY [None]
  - CHEST PAIN [None]
  - SINUSITIS [None]
  - MULTIPLE SCLEROSIS RELAPSE [None]
  - SECONDARY HYPERTENSION [None]
  - PALPITATIONS [None]
